FAERS Safety Report 6644226-5 (Version None)
Quarter: 2010Q1

REPORT INFORMATION
  Report Type: 
  Country: None (occurrence: None)
  Receive Date: 20100322
  Receipt Date: 20100315
  Transmission Date: 20100710
  Serious: Yes (Life-Threatening, Hospitalization)
  Sender: FDA-Public Use
  Company Number: DK-JNJFOC-20080500997

PATIENT
  Sex: Male
  Weight: 90 kg

DRUGS (3)
  1. IMODIUM [Suspect]
     Indication: DIARRHOEA
     Route: 048
  2. METRONIDAZOLE [Suspect]
     Indication: GASTROENTERITIS
     Route: 065
  3. KALEORID [Concomitant]
     Indication: MINERAL SUPPLEMENTATION
     Route: 048

REACTIONS (2)
  - LINEAR IGA DISEASE [None]
  - STEVENS-JOHNSON SYNDROME [None]
